FAERS Safety Report 16116718 (Version 2)
Quarter: 2019Q1

REPORT INFORMATION
  Report Type: Report from Study
  Country: AR (occurrence: AR)
  Receive Date: 20190326
  Receipt Date: 20190330
  Transmission Date: 20190418
  Serious: Yes (Other)
  Sender: FDA-Public Use
  Company Number: AR-ROCHE-2194558

PATIENT

DRUGS (5)
  1. IRINOTECAN [Suspect]
     Active Substance: IRINOTECAN
     Indication: COLORECTAL CANCER METASTATIC
     Route: 065
  2. LEUCOVORIN. [Suspect]
     Active Substance: LEUCOVORIN
     Indication: COLORECTAL CANCER METASTATIC
     Route: 065
  3. BEVACIZUMAB. [Suspect]
     Active Substance: BEVACIZUMAB
     Indication: COLORECTAL CANCER METASTATIC
     Dosage: ON DAY 1 OF EACH CYCLE EVERY 2 WEEKS
     Route: 042
  4. FLUOROURACIL. [Suspect]
     Active Substance: FLUOROURACIL
     Indication: COLORECTAL CANCER METASTATIC
     Route: 065
  5. OXALIPLATIN. [Suspect]
     Active Substance: OXALIPLATIN
     Indication: COLORECTAL CANCER METASTATIC
     Dosage: THE FIRST OXALIPLATIN DOSE WAS FIXED AT 85 MG/M2 BUT COULD BE REDUCED THEREAFTER
     Route: 065

REACTIONS (24)
  - Stomatitis [Unknown]
  - Sepsis [Unknown]
  - Vena cava thrombosis [Unknown]
  - Neuropathy peripheral [Unknown]
  - Hypotension [Unknown]
  - Drug hypersensitivity [Unknown]
  - Oral candidiasis [Unknown]
  - Vomiting [Unknown]
  - Asthenia [Unknown]
  - Hypertension [Unknown]
  - Paraesthesia [Unknown]
  - Palmar-plantar erythrodysaesthesia syndrome [Unknown]
  - Neutropenia [Unknown]
  - Leukopenia [Unknown]
  - Subdural haematoma [Unknown]
  - Tumour haemorrhage [Unknown]
  - Diarrhoea [Unknown]
  - Abdominal pain [Unknown]
  - Nausea [Unknown]
  - Thrombocytopenia [Unknown]
  - Dystonia [Unknown]
  - Anaemia [Unknown]
  - Fatigue [Unknown]
  - Urinary tract infection [Unknown]
